FAERS Safety Report 7368511-7 (Version None)
Quarter: 2011Q1

REPORT INFORMATION
  Report Type: 
  Country: None (occurrence: None)
  Receive Date: 20110314
  Receipt Date: 20110223
  Transmission Date: 20110831
  Serious: Yes (Hospitalization, Other)
  Sender: FDA-Public Use
  Company Number: D1100919

PATIENT
  Age: 77 Year
  Sex: Female

DRUGS (12)
  1. CALCIUM PLUS MAGNESIUM (MAGNESIUM, CALCIUM) [Concomitant]
  2. LASIX [Suspect]
     Indication: RENAL DISORDER
     Dosage: 1 IN 1 D, ORAL
     Route: 048
  3. ASPIRIN [Concomitant]
  4. LIPITOR [Concomitant]
  5. ZINC (ZINC) [Concomitant]
  6. DIGOXIN [Concomitant]
  7. NEXIUM [Concomitant]
  8. VITAMIN B COMPLEX TAB [Concomitant]
  9. SPIRONOLACTONE [Concomitant]
  10. JANTOVEN [Suspect]
     Indication: PRODUCT USED FOR UNKNOWN INDICATION
     Dosage: 12/ TABLET, QD TUESDAY AND THURSDAY, ORAL
     Route: 048
     Dates: start: 20080601
  11. DARVOCET-N (PROPOXYPHENE, PARACETAMOL) [Concomitant]
  12. ACETAMINOPHEN [Concomitant]

REACTIONS (17)
  - WEIGHT DECREASED [None]
  - DILATATION ATRIAL [None]
  - MYOCARDIAL INFARCTION [None]
  - SINUS TACHYCARDIA [None]
  - CONDITION AGGRAVATED [None]
  - MITRAL VALVE INCOMPETENCE [None]
  - HAEMATEMESIS [None]
  - BREAST PAIN [None]
  - DIVERTICULITIS [None]
  - BLOOD PRESSURE DIASTOLIC DECREASED [None]
  - NIGHT SWEATS [None]
  - CARDIAC FAILURE CONGESTIVE [None]
  - RENAL FAILURE [None]
  - HAEMORRHOIDAL HAEMORRHAGE [None]
  - MUSCLE STRAIN [None]
  - CORONARY ARTERY OCCLUSION [None]
  - INTERNATIONAL NORMALISED RATIO INCREASED [None]
